FAERS Safety Report 9645770 (Version 1)
Quarter: 2013Q4

REPORT INFORMATION
  Report Type: Spontaneous
  Country: US (occurrence: None)
  Receive Date: 20131024
  Receipt Date: 20131024
  Transmission Date: 20140711
  Serious: Yes (Hospitalization)
  Sender: FDA-Public Use
  Company Number: None

PATIENT
  Age: 5 Month
  Sex: Male
  Weight: 55 kg

DRUGS (1)
  1. SORAFENIB [Suspect]
     Indication: HEPATOCELLULAR CARCINOMA
     Route: 048

REACTIONS (1)
  - Drug eruption [None]
